FAERS Safety Report 8405978-7 (Version None)
Quarter: 2012Q2

REPORT INFORMATION
  Report Type: 
  Country: None (occurrence: None)
  Receive Date: 20120529
  Receipt Date: 20000501
  Transmission Date: 20120825
  Serious: Yes (Death, Other)
  Sender: FDA-Public Use
  Company Number: 02100-JPN-00-0033

PATIENT
  Age: 72 Year
  Sex: Female
  Weight: 38 kg

DRUGS (12)
  1. PLETAL [Suspect]
     Indication: DISSEMINATED INTRAVASCULAR COAGULATION
     Dosage: 100 MG, QD, ORAL
     Route: 048
     Dates: start: 20000408, end: 20000414
  2. PLETAL [Suspect]
     Indication: DISSEMINATED INTRAVASCULAR COAGULATION
     Dosage: 100 MG, QD, ORAL
     Route: 048
     Dates: start: 20000415, end: 20000428
  3. ROCORNAL (TRAPIDIL) [Concomitant]
  4. TSUMURA 25 (CHINESE HERBAL MEDICINE) [Concomitant]
  5. NITRODERM [Concomitant]
  6. HALOPERIDOL [Concomitant]
  7. BUFFERIN [Concomitant]
  8. BUP-4 (PROPIVERNE HYDROCHLORIDE) [Concomitant]
  9. CEREKINON (TRIMEBUTINE MALEATE) [Concomitant]
  10. NITOROL - SLOW RELEASE (ISOSORBIDE DINITRATE) [Concomitant]
  11. PRAVASTATIN [Concomitant]
  12. JUVELA NICOTINATE (TOCOPHERYL NICOTINATE) [Concomitant]

REACTIONS (9)
  - VOMITING [None]
  - RENAL FAILURE [None]
  - MYOCARDIAL INFARCTION [None]
  - NAUSEA [None]
  - OEDEMA [None]
  - THROMBOCYTOPENIA [None]
  - CARDIAC FAILURE ACUTE [None]
  - FACE OEDEMA [None]
  - LEFT VENTRICULAR HYPERTROPHY [None]
